FAERS Safety Report 4525143-3 (Version None)
Quarter: 2004Q4

REPORT INFORMATION
  Report Type: 
  Country: None (occurrence: None)
  Receive Date: 20041116
  Receipt Date: 20040716
  Transmission Date: 20050328
  Serious: No
  Sender: FDA-Public Use
  Company Number: S04-USA-04885-01

PATIENT
  Age: 84 Year
  Sex: Female

DRUGS (9)
  1. NAMENDA [Suspect]
     Dosage: 15 MG QD PO
     Route: 048
     Dates: start: 20040702, end: 20040708
  2. NAMENDA [Suspect]
     Dosage: 10 MG BID PO
     Route: 048
     Dates: start: 20040709
  3. NAMENDA [Suspect]
     Dosage: 5 MG QD PO
     Route: 048
     Dates: start: 20040618, end: 20040624
  4. NAMENDA [Suspect]
     Dosage: 10 MG QD PO
     Route: 048
     Dates: start: 20040625, end: 20040701
  5. PAXIL [Concomitant]
  6. RANITIDINE [Concomitant]
  7. DETROL [Concomitant]
  8. FOLATE [Concomitant]
  9. KEFLEX [Concomitant]

REACTIONS (1)
  - ORTHOSTATIC HYPOTENSION [None]
